FAERS Safety Report 19477880 (Version 1)
Quarter: 2021Q2

REPORT INFORMATION
  Report Type: Spontaneous
  Country: US (occurrence: US)
  Receive Date: 20210630
  Receipt Date: 20210630
  Transmission Date: 20210717
  Serious: Yes (Other)
  Sender: FDA-Public Use
  Company Number: US-NEOS THERAPEUTICS, LP-2020NEO00055

PATIENT
  Sex: Male
  Weight: 94.33 kg

DRUGS (5)
  1. COTEMPLA XR?ODT [Suspect]
     Active Substance: METHYLPHENIDATE
     Indication: ATTENTION DEFICIT HYPERACTIVITY DISORDER
     Dosage: 17.3 MG, 1X/DAY
     Route: 048
     Dates: start: 2019
  2. CLARITIN [Concomitant]
     Active Substance: LORATADINE
  3. COTEMPLA XR?ODT [Suspect]
     Active Substance: METHYLPHENIDATE
     Dosage: 43.25 MG, 1X/DAY  (TOTAL 2.5 TABLETS)
     Route: 048
     Dates: start: 202011
  4. FLONASE [Concomitant]
     Active Substance: FLUTICASONE PROPIONATE
     Dosage: DAILY
  5. COTEMPLA XR?ODT [Suspect]
     Active Substance: METHYLPHENIDATE
     Indication: AUTISM SPECTRUM DISORDER
     Dosage: 34.6 MG, 1X/DAY (TOTAL 2 TABLETS)
     Route: 048
     Dates: end: 202011

REACTIONS (3)
  - Hepatic enzyme increased [Not Recovered/Not Resolved]
  - Therapeutic response shortened [Not Recovered/Not Resolved]
  - Hepatic steatosis [Not Recovered/Not Resolved]

NARRATIVE: CASE EVENT DATE: 2019
